FAERS Safety Report 8297286-2 (Version None)
Quarter: 2012Q2

REPORT INFORMATION
  Report Type: 
  Country: None (occurrence: None)
  Receive Date: 20120417
  Receipt Date: 20120403
  Transmission Date: 20120825
  Serious: Yes (Hospitalization)
  Sender: FDA-Public Use
  Company Number: A0972532A

PATIENT
  Age: 86 Year
  Sex: Female

DRUGS (11)
  1. ESOMEPRAZOLE MAGNESIUM [Concomitant]
  2. ASPIRIN [Concomitant]
  3. METOPROLOL TARTRATE [Concomitant]
  4. CLONIDINE [Concomitant]
  5. GLIPIZIDE [Concomitant]
  6. SPIRONOLACTONE [Concomitant]
  7. LISINOPRIL [Concomitant]
  8. AMLODIPINE BESYLATE [Concomitant]
  9. POTASSIUM CHLORIDE [Concomitant]
  10. FUROSEMIDE [Concomitant]
  11. SIMETHICONE (FORMULATION UNKNOWN) (SIMETHICONE) [Suspect]
     Indication: PRODUCT USED FOR UNKNOWN INDICATION
     Dosage: UNK / UNK / ORAL
     Route: 048

REACTIONS (4)
  - DYSPNOEA [None]
  - MALAISE [None]
  - EXPIRED DRUG ADMINISTERED [None]
  - ABDOMINAL DISCOMFORT [None]
